FAERS Safety Report 8041890-3 (Version None)
Quarter: 2012Q1

REPORT INFORMATION
  Report Type: 
  Country: None (occurrence: None)
  Receive Date: 20120112
  Receipt Date: 20120112
  Transmission Date: 20120608
  Serious: Yes (Other)
  Sender: FDA-Public Use
  Company Number: None

PATIENT
  Age: 41 Year
  Sex: Female
  Weight: 89.811 kg

DRUGS (2)
  1. EXCEDRIN (MIGRAINE) [Suspect]
     Indication: HEADACHE
     Dosage: 2
     Route: 048
     Dates: start: 20111001, end: 20120109
  2. EXCEDRIN (MIGRAINE) [Suspect]
     Indication: NECK PAIN
     Dosage: 2
     Route: 048
     Dates: start: 20111001, end: 20120109

REACTIONS (18)
  - EYE IRRITATION [None]
  - FEELING ABNORMAL [None]
  - POOR QUALITY SLEEP [None]
  - PRODUCT QUALITY ISSUE [None]
  - ERYTHEMA [None]
  - NASAL DISCOMFORT [None]
  - RESPIRATORY TRACT CONGESTION [None]
  - UNEVALUABLE EVENT [None]
  - BURNING SENSATION [None]
  - ABNORMAL SENSATION IN EYE [None]
  - MALAISE [None]
  - SKIN WRINKLING [None]
  - EYE SWELLING [None]
  - SECRETION DISCHARGE [None]
  - INFECTION [None]
  - RHINALGIA [None]
  - EAR DISCOMFORT [None]
  - HEADACHE [None]
